FAERS Safety Report 19813116 (Version 2)
Quarter: 2021Q4

REPORT INFORMATION
  Report Type: Report from Study
  Country: JP (occurrence: JP)
  Receive Date: 20210910
  Receipt Date: 20211013
  Transmission Date: 20220303
  Serious: Yes (Hospitalization)
  Sender: FDA-Public Use
  Company Number: JP-MYLANLABS-2021M1059661

PATIENT
  Age: 70 Year
  Sex: Male
  Weight: 60 kg

DRUGS (8)
  1. PREDNISOLONE [Suspect]
     Active Substance: PREDNISOLONE
     Indication: Diarrhoea
     Dosage: DAY 28-35: 50 MG
     Route: 048
  2. PREDNISOLONE [Suspect]
     Active Substance: PREDNISOLONE
     Indication: Colitis
  3. PREDNISOLONE [Suspect]
     Active Substance: PREDNISOLONE
     Indication: Diarrhoea
     Dosage: 1 MILLIGRAM/KILOGRAM, DAY 25-27: 60 MG
     Route: 042
  4. PREDNISOLONE [Suspect]
     Active Substance: PREDNISOLONE
     Indication: Colitis
  5. INFLIXIMAB [Suspect]
     Active Substance: INFLIXIMAB
     Indication: Diarrhoea
     Route: 065
  6. INFLIXIMAB [Suspect]
     Active Substance: INFLIXIMAB
     Indication: Colitis
  7. NIVOLUMAB [Concomitant]
     Active Substance: NIVOLUMAB
     Indication: Adenocarcinoma
     Dosage: 35 COURSES
     Route: 065
  8. ATEZOLIZUMAB [Concomitant]
     Active Substance: ATEZOLIZUMAB
     Indication: Adenocarcinoma
     Dosage: 3 COURSES
     Route: 065

REACTIONS (2)
  - Drug ineffective [Unknown]
  - Clostridium difficile infection [Unknown]
